FAERS Safety Report 25771077 (Version 1)
Quarter: 2025Q3

REPORT INFORMATION
  Report Type: Spontaneous
  Country: CN (occurrence: CN)
  Receive Date: 20250908
  Receipt Date: 20250908
  Transmission Date: 20251020
  Serious: Yes (Hospitalization)
  Sender: MERCK SHARP & DOHME LLC
  Company Number: CN-SICHUAN KELUN- BIOTECH BIOPHARMACEUTICAL CO. LTD.-2025KB000196

PATIENT
  Age: 58 Year
  Sex: Female
  Weight: 45 kg

DRUGS (2)
  1. SACITUZUMAB TIRUMOTECAN [Suspect]
     Active Substance: SACITUZUMAB TIRUMOTECAN
     Indication: Breast cancer
     Dosage: STRENGTH: 200 MG/VIAL; DAILY DOSE: 200 MG
     Route: 041
     Dates: start: 20241210, end: 20241210
  2. SODIUM CHLORIDE [Suspect]
     Active Substance: SODIUM CHLORIDE
     Indication: Breast cancer
     Route: 041
     Dates: start: 20241210, end: 20241210

REACTIONS (3)
  - Tachypnoea [Unknown]
  - Asthenia [Recovering/Resolving]
  - Myelosuppression [Recovering/Resolving]

NARRATIVE: CASE EVENT DATE: 20241218
